FAERS Safety Report 4801835-3 (Version None)
Quarter: 2005Q4

REPORT INFORMATION
  Report Type: 
  Country: None (occurrence: None)
  Receive Date: 20051011
  Receipt Date: 20050921
  Transmission Date: 20060501
  Serious: Yes (Hospitalization)
  Sender: FDA-Public Use
  Company Number: TRP_0455_2005

PATIENT
  Age: 47 Year
  Sex: Male
  Weight: 81.6475 kg

DRUGS (9)
  1. RIBASPHERE [Suspect]
     Indication: HEPATITIS C
     Dosage: DF PO
     Route: 048
     Dates: start: 20050722
  2. PEG-INTRON [Suspect]
     Indication: HEPATITIS C
     Dosage: DF SC
     Route: 058
     Dates: start: 20050722
  3. ADVAIR DISKUS 100/50 [Concomitant]
  4. ALBUTEROL SULFATE [Concomitant]
  5. DILAUDID [Concomitant]
  6. EFFEXOR [Concomitant]
  7. THEOPHYLLINE [Concomitant]
  8. XANAX [Concomitant]
  9. ADVAIR DISKUS 100/50 [Concomitant]

REACTIONS (3)
  - BIPOLAR I DISORDER [None]
  - MARITAL PROBLEM [None]
  - SELF-INJURIOUS IDEATION [None]
